FAERS Safety Report 24850193 (Version 1)
Quarter: 2025Q1

REPORT INFORMATION
  Report Type: Spontaneous
  Country: US (occurrence: None)
  Receive Date: 20250116
  Receipt Date: 20250116
  Transmission Date: 20250409
  Serious: Yes (Other)
  Sender: FDA-CTU
  Company Number: None

PATIENT
  Age: 36 Year
  Sex: Female
  Weight: 58.5 kg

DRUGS (9)
  1. CITALOPRAM [Suspect]
     Active Substance: CITALOPRAM
     Indication: Depression
     Dates: start: 20110701, end: 20120208
  2. ASCORBIC ACID [Concomitant]
     Active Substance: ASCORBIC ACID
  3. Vitamins d [Concomitant]
  4. Vitamins B12 [Concomitant]
  5. PRIMROSE OIL [Concomitant]
  6. ZINC [Concomitant]
     Active Substance: ZINC
  7. nettles [Concomitant]
  8. UNSPECIFIED INGREDIENT [Concomitant]
     Active Substance: UNSPECIFIED INGREDIENT
  9. QUERCETIN [Concomitant]
     Active Substance: QUERCETIN

REACTIONS (3)
  - Genital anaesthesia [None]
  - Vulvovaginal pain [None]
  - Sexual dysfunction [None]

NARRATIVE: CASE EVENT DATE: 20110701
